FAERS Safety Report 8533248 (Version 2)
Quarter: 2013Q4

REPORT INFORMATION
  Report Type: Spontaneous
  Country: US (occurrence: US)
  Receive Date: 20120427
  Receipt Date: 20131230
  Transmission Date: 20140711
  Serious: Yes (Hospitalization, Other)
  Sender: FDA-Public Use
  Company Number: US-BAYER-2012-039942

PATIENT
  Age: 38 Year
  Sex: Female

DRUGS (11)
  1. YAZ [Suspect]
     Dosage: UNK
     Dates: start: 201002, end: 201005
  2. YASMIN [Suspect]
     Dosage: UNK
     Dates: start: 201002, end: 201005
  3. METFORMIN [Concomitant]
  4. ATIVAN [Concomitant]
  5. ZYRTEC [Concomitant]
  6. PHENTERMINE [Concomitant]
  7. CIPRODEX [Concomitant]
  8. DIETHYLPROPION [Concomitant]
     Dosage: 25 MG, UNK
  9. XYZAL [Concomitant]
     Dosage: 5 MG, UNK
  10. CEPHALEXIN [Concomitant]
     Dosage: 500 MG, UNK
  11. HEMATOGENE [Concomitant]

REACTIONS (8)
  - Biliary dyskinesia [None]
  - Cholecystitis chronic [None]
  - Gallbladder injury [None]
  - Injury [None]
  - General physical health deterioration [None]
  - Emotional distress [None]
  - Pain [None]
  - Anxiety [None]
